FAERS Safety Report 8829779 (Version 1)
Quarter: 2012Q4

REPORT INFORMATION
  Report Type: 
  Country: IL (occurrence: IL)
  Receive Date: 20121008
  Receipt Date: 20121008
  Transmission Date: 20130627
  Serious: Yes (Other)
  Sender: FDA-Public Use
  Company Number: IL-ROCHE-1141152

PATIENT

DRUGS (2)
  1. RITUXIMAB [Suspect]
     Indication: JUVENILE ARTHRITIS
     Route: 065
  2. METHOTREXATE [Concomitant]

REACTIONS (1)
  - Bacteraemia [Unknown]
